FAERS Safety Report 9717754 (Version 1)
Quarter: 2013Q4

REPORT INFORMATION
  Report Type: Spontaneous
  Country: US (occurrence: US)
  Receive Date: 20131127
  Receipt Date: 20131127
  Transmission Date: 20140711
  Serious: Yes (Hospitalization)
  Sender: FDA-Public Use
  Company Number: US-GLAXOSMITHKLINE-A1051067A

PATIENT
  Age: 76 Year
  Sex: Female

DRUGS (4)
  1. ADVAIR [Suspect]
     Indication: ASTHMA
     Dosage: 1PUFF PER DAY
     Route: 055
     Dates: start: 2003
  2. FENTANYL [Suspect]
     Indication: PRODUCT USED FOR UNKNOWN INDICATION
     Route: 065
  3. QUINAPRIL [Suspect]
     Indication: PRODUCT USED FOR UNKNOWN INDICATION
     Route: 065
  4. LISINOPRIL [Concomitant]

REACTIONS (8)
  - Osteoporosis [Unknown]
  - Osteopenia [Unknown]
  - Agitation [Unknown]
  - Hip fracture [Unknown]
  - Blood pressure increased [Unknown]
  - Heart rate increased [Unknown]
  - Intestinal resection [Unknown]
  - Medication error [Unknown]
